FAERS Safety Report 5606559-0 (Version None)
Quarter: 2008Q1

REPORT INFORMATION
  Report Type: 
  Country: None (occurrence: None)
  Receive Date: 20080129
  Receipt Date: 20080121
  Transmission Date: 20080703
  Serious: Yes (Hospitalization, Other)
  Sender: FDA-Public Use
  Company Number: AU-AVENTIS-200721263GDDC

PATIENT
  Age: 70 Year
  Sex: Female

DRUGS (9)
  1. ARAVA [Suspect]
     Indication: RHEUMATOID ARTHRITIS
     Route: 048
     Dates: start: 20050716
  2. ATACAND [Concomitant]
     Dosage: DOSE: UNK
     Route: 048
  3. CARDIZEM [Concomitant]
     Dosage: DOSE: UNK
     Route: 048
  4. LIPITOR [Concomitant]
     Dosage: DOSE: UNK
     Route: 048
  5. MINAX [Concomitant]
     Dosage: DOSE: UNK
  6. MINITRAN                           /00003201/ [Concomitant]
     Dosage: DOSE: UNK
     Route: 048
  7. PEPCIDINE [Concomitant]
     Dosage: DOSE: UNK
     Route: 048
  8. PLAVIX [Concomitant]
     Dosage: DOSE: UNK
     Route: 048
  9. PREDNISONE TAB [Concomitant]
     Route: 048

REACTIONS (4)
  - CORONARY ARTERY BYPASS [None]
  - DENTAL CARIES [None]
  - GINGIVAL DISORDER [None]
  - STAPHYLOCOCCAL INFECTION [None]
